FAERS Safety Report 10991046 (Version 1)
Quarter: 2015Q1

REPORT INFORMATION
  Report Type: Spontaneous
  Country: US (occurrence: None)
  Receive Date: 20150313
  Receipt Date: 20150313
  Transmission Date: 20150721
  Serious: Yes (Other)
  Sender: FDA-Public Use
  Company Number: 1494335

PATIENT
  Sex: Female

DRUGS (8)
  1. XOLAIR [Suspect]
     Active Substance: OMALIZUMAB
     Indication: ASTHMA
     Dosage: 375 MG, 1 IN 2 WK, SUBCUTANEOUS
     Route: 058
     Dates: start: 20120816
  2. ALLEGRA (FEXOFENADINE HYDROCHLORIDE) [Concomitant]
  3. DULERA (FORMOTEROL FUMARATE, MOMETASONE FUROATE) [Concomitant]
  4. SINGULAIR (MONTELUKAST SODIUM) [Concomitant]
  5. PROAIR (ARGENTINA) (FLUTICASONE PROPIONATE) [Concomitant]
  6. PATADAY (OLOPATADINE HYDROCHLORIDE) [Concomitant]
  7. ASTELIN (AZELASTINE HYDROCHLORIDE) [Concomitant]
     Active Substance: AZELASTINE HYDROCHLORIDE
  8. NEXIUM [Concomitant]
     Active Substance: ESOMEPRAZOLE MAGNESIUM

REACTIONS (1)
  - Breast cancer metastatic [None]
